FAERS Safety Report 15925080 (Version 3)
Quarter: 2019Q2

REPORT INFORMATION
  Report Type: Spontaneous
  Country: JP (occurrence: JP)
  Receive Date: 20190206
  Receipt Date: 20190405
  Transmission Date: 20190711
  Serious: Yes (Death, Other)
  Sender: FDA-Public Use
  Company Number: JP-TEVA-2019-JP-1007161

PATIENT
  Age: 71 Year
  Sex: Female
  Weight: 37.2 kg

DRUGS (11)
  1. AZILECT [Suspect]
     Active Substance: RASAGILINE MESYLATE
     Indication: PARKINSON^S DISEASE
     Dosage: .5 MILLIGRAM DAILY;
     Route: 048
     Dates: start: 20181115, end: 20181210
  2. DOPS [Concomitant]
     Active Substance: DROXIDOPA
     Dates: start: 20141009, end: 20181210
  3. NEUPRO [Concomitant]
     Active Substance: ROTIGOTINE
     Dates: start: 20170302, end: 20181210
  4. FURSULTIAMINE [Concomitant]
     Active Substance: FURSULTIAMINE
  5. TRERIEF [Concomitant]
     Active Substance: ZONISAMIDE
     Dates: start: 20100527, end: 20181210
  6. STALEVO [Concomitant]
     Active Substance: CARBIDOPA\ENTACAPONE\LEVODOPA
     Dates: start: 20141218, end: 20181210
  7. BETANIS [Concomitant]
     Active Substance: MIRABEGRON
     Dates: start: 20121115, end: 20181210
  8. METHYCOBAL [Concomitant]
     Active Substance: METHYLCOBALAMIN
     Dates: start: 20091126, end: 20181210
  9. LIORESAL [Concomitant]
     Active Substance: BACLOFEN
  10. NOURIAST [Concomitant]
     Active Substance: ISTRADEFYLLINE
     Dates: start: 20130808, end: 20181210
  11. EDIROL [Concomitant]
     Active Substance: ELDECALCITOL
     Dates: start: 20110825, end: 20181210

REACTIONS (5)
  - Myocardial infarction [Fatal]
  - Condition aggravated [Recovering/Resolving]
  - Dysphagia [Unknown]
  - Dyslalia [Unknown]
  - Dehydration [Recovering/Resolving]
